FAERS Safety Report 22162331 (Version 3)
Quarter: 2023Q2

REPORT INFORMATION
  Report Type: Report from Study
  Country: ES (occurrence: ES)
  Receive Date: 20230331
  Receipt Date: 20230515
  Transmission Date: 20230721
  Serious: Yes (Other)
  Sender: FDA-Public Use
  Company Number: ES-NOVPHSZ-PHHY2019ES202841

PATIENT

DRUGS (8)
  1. EFAVIRENZ\EMTRICITABINE\TENOFOVIR DISOPROXIL FUMARATE [Suspect]
     Active Substance: EFAVIRENZ\EMTRICITABINE\TENOFOVIR DISOPROXIL FUMARATE
     Indication: HIV infection
     Dosage: UNK
     Route: 065
     Dates: start: 2008
  2. EFAVIRENZ\EMTRICITABINE\TENOFOVIR DISOPROXIL FUMARATE [Suspect]
     Active Substance: EFAVIRENZ\EMTRICITABINE\TENOFOVIR DISOPROXIL FUMARATE
     Indication: Antiretroviral therapy
  3. RITONAVIR [Interacting]
     Active Substance: RITONAVIR
     Indication: HIV infection
     Dosage: UNK
     Route: 065
     Dates: start: 2008
  4. RITONAVIR [Interacting]
     Active Substance: RITONAVIR
     Indication: Antiretroviral therapy
  5. LOPINAVIR [Interacting]
     Active Substance: LOPINAVIR
     Indication: HIV infection
     Dosage: UNK
     Route: 065
     Dates: start: 2008
  6. LOPINAVIR [Interacting]
     Active Substance: LOPINAVIR
     Indication: Antiretroviral therapy
  7. EFAVIRENZ [Interacting]
     Active Substance: EFAVIRENZ
     Indication: Antiretroviral therapy
     Dosage: UNK
     Route: 048
     Dates: start: 2008
  8. EFAVIRENZ [Interacting]
     Active Substance: EFAVIRENZ
     Indication: HIV infection

REACTIONS (3)
  - Hepatotoxicity [Recovered/Resolved]
  - Neurotoxicity [Recovered/Resolved]
  - Drug interaction [Unknown]
